FAERS Safety Report 8922400 (Version 2)
Quarter: 2013Q1

REPORT INFORMATION
  Report Type: Spontaneous
  Country: BR (occurrence: BR)
  Receive Date: 20121123
  Receipt Date: 20130125
  Transmission Date: 20140127
  Serious: Yes (Other)
  Sender: FDA-Public Use
  Company Number: PHHY2012BR105519

PATIENT
  Age: 65 Year
  Sex: Female

DRUGS (9)
  1. DIOVAN HCT [Suspect]
     Indication: HYPERTENSION
     Dosage: 1 DF (80MG VALS/ 12.5MG HCT), DAILY
     Dates: start: 2004
  2. DIOVAN HCT [Suspect]
     Dosage: 1 DF (160/12.5 MG)
     Route: 048
  3. SIMVASTATIN [Suspect]
     Indication: BLOOD CHOLESTEROL ABNORMAL
     Dosage: 1 DF, DAILY
  4. AAS [Suspect]
     Indication: VASODILATATION
     Dosage: 1 DF, DAILY
  5. RIVOTRIL [Concomitant]
     Indication: SLEEP DISORDER
     Dosage: 1 DF, DAILY
  6. SELO-ZOK [Concomitant]
     Indication: CARDIAC DISORDER
     Dosage: 1 DF, DAILY
  7. VASLIP [Concomitant]
  8. CITTA [Concomitant]
  9. OSTEONEURIM [Concomitant]
     Indication: OSTEOPENIA

REACTIONS (12)
  - Thyroid neoplasm [Recovering/Resolving]
  - Vulvovaginal dryness [Unknown]
  - Vaginal haemorrhage [Unknown]
  - Dysphonia [Recovering/Resolving]
  - Crying [Recovering/Resolving]
  - Gastritis [Unknown]
  - Skin lesion [Unknown]
  - Nervousness [Recovering/Resolving]
  - Malaise [Recovering/Resolving]
  - Depression [Recovering/Resolving]
  - Anxiety [Recovering/Resolving]
  - Insomnia [Recovering/Resolving]
